FAERS Safety Report 20673917 (Version 1)
Quarter: 2022Q2

REPORT INFORMATION
  Report Type: Report from Study
  Country: CA (occurrence: CA)
  Receive Date: 20220405
  Receipt Date: 20220405
  Transmission Date: 20220720
  Serious: Yes (Other)
  Sender: FDA-Public Use
  Company Number: CA-TAKEDA-2022TUS020812

PATIENT
  Age: 61 Year
  Sex: Male

DRUGS (6)
  1. VEDOLIZUMAB [Suspect]
     Active Substance: VEDOLIZUMAB
     Indication: Colitis ulcerative
     Dosage: 300 MILLIGRAM
     Route: 042
     Dates: start: 20211008
  2. CORTISONE [Suspect]
     Active Substance: CORTISONE
     Indication: Product used for unknown indication
     Dosage: UNK
     Route: 065
  3. Cortiment [Concomitant]
     Dosage: 9 MILLIGRAM, QD
     Dates: start: 202008
  4. PERINDOPRIL [Concomitant]
     Active Substance: PERINDOPRIL
     Dosage: 4 MILLIGRAM, QD
  5. AMLODIPINE BESYLATE [Concomitant]
     Active Substance: AMLODIPINE BESYLATE
     Indication: Hypertension
     Dosage: 5 MILLIGRAM, QD
  6. MESALAMINE [Concomitant]
     Active Substance: MESALAMINE
     Dosage: 1.2 GRAM, TID
     Dates: start: 202005

REACTIONS (2)
  - Cellulitis [Unknown]
  - Wheezing [Unknown]
